FAERS Safety Report 10441047 (Version 5)
Quarter: 2016Q2

REPORT INFORMATION
  Report Type: Report from Study
  Country: US (occurrence: US)
  Receive Date: 20140909
  Receipt Date: 20160511
  Transmission Date: 20160815
  Serious: Yes (Other)
  Sender: FDA-Public Use
  Company Number: US-AMGEN-USASP2014067819

PATIENT
  Age: 78 Year
  Sex: Female
  Weight: 72.56 kg

DRUGS (1)
  1. PROLIA [Suspect]
     Active Substance: DENOSUMAB
     Indication: PRODUCT USED FOR UNKNOWN INDICATION
     Dosage: UNK, QMO
     Route: 058
     Dates: start: 201511

REACTIONS (4)
  - Hip arthroplasty [Unknown]
  - Bone pain [Unknown]
  - Inappropriate schedule of drug administration [Unknown]
  - Pain in extremity [Unknown]

NARRATIVE: CASE EVENT DATE: 201511
